FAERS Safety Report 4578878-0 (Version None)
Quarter: 2005Q1

REPORT INFORMATION
  Report Type: 
  Country: None (occurrence: None)
  Receive Date: 20050211
  Receipt Date: 20041230
  Transmission Date: 20050727
  Serious: Yes (Other)
  Sender: FDA-Public Use
  Company Number: US-AMGEN-KDL110012

PATIENT
  Sex: Female

DRUGS (7)
  1. ENBREL [Suspect]
     Indication: PSORIATIC ARTHROPATHY
     Route: 058
     Dates: start: 20040313, end: 20040815
  2. ESTRADIOL [Concomitant]
  3. KADIAN (ALPHARMA) [Concomitant]
  4. PREVACID [Concomitant]
  5. CELEBREX [Concomitant]
  6. HYDROXYZINE [Concomitant]
  7. PERCOCET [Concomitant]

REACTIONS (3)
  - FUNGAL INFECTION [None]
  - LUNG NEOPLASM [None]
  - MYCOBACTERIAL INFECTION [None]
